FAERS Safety Report 8886023 (Version 1)
Quarter: 2012Q4

REPORT INFORMATION
  Report Type: 
  Country: SE (occurrence: SE)
  Receive Date: 20121105
  Receipt Date: 20121105
  Transmission Date: 20130627
  Serious: Yes (Hospitalization)
  Sender: FDA-Public Use
  Company Number: SE-PFIZER INC-2012269012

PATIENT
  Age: 49 Year
  Sex: Female
  Weight: 67 kg

DRUGS (21)
  1. GENOTROPIN [Suspect]
     Indication: PANHYPOPITUITARISM
     Dosage: 0.2 mg, 7/wk
     Route: 058
     Dates: start: 20090205
  2. DHEA [Concomitant]
     Indication: BLOOD CORTICOTROPHIN DECREASED
     Dosage: UNK
     Dates: start: 19930601
  3. DIMETICON [Concomitant]
     Indication: METEORISM
     Dosage: UNK
     Dates: start: 20000101
  4. IMIGRAN [Concomitant]
     Indication: MIGRAINE
     Dosage: UNK
     Dates: start: 20000101
  5. LOPERAMIDE HYDROCHLORIDE [Concomitant]
     Indication: ANTIDIARRHEAL SUPPORTIVE CARE
     Dosage: UNK
     Dates: start: 20000101
  6. CIPRAMIL [Concomitant]
     Indication: DEPRESSION
     Dosage: UNK
     Dates: start: 20010201
  7. ESUCOS [Concomitant]
     Indication: SEDATIVE THERAPY
     Dosage: UNK
     Dates: start: 20021219
  8. BRICANYL [Concomitant]
     Indication: ASTHMA
     Dosage: UNK
     Dates: start: 20021220
  9. NEXIUM [Concomitant]
     Indication: GASTROESOPHAGEAL REFLUX
     Dosage: UNK
     Dates: start: 20021220
  10. ERGENYL [Concomitant]
     Indication: EPILEPSY
     Dosage: UNK
     Dates: start: 20030601
  11. ERGENYL [Concomitant]
     Indication: CONVULSIONS
  12. ERGENYL [Concomitant]
     Indication: SEIZURE
  13. HYDROCORTISONE [Concomitant]
     Indication: BLOOD CORTICOTROPHIN DECREASED
     Dosage: UNK
     Dates: start: 19930301
  14. LEVOTHYROXINE [Concomitant]
     Indication: BLOOD THYROID STIMULATING HORMONE DECREASED
     Dosage: UNK
     Dates: start: 19930601
  15. LEVOTHYROXINE [Concomitant]
     Indication: PRIMARY HYPOTHYROIDISM
  16. PREMARINA [Concomitant]
     Indication: BLOOD LUTEINISING HORMONE DECREASED
     Dosage: UNK
     Dates: start: 19930601
  17. PREMARINA [Concomitant]
     Indication: BLOOD FOLLICLE STIMULATING HORMONE DECREASED
  18. PREMARINA [Concomitant]
     Indication: HYPOGONADISM FEMALE
  19. PROVERA [Concomitant]
     Indication: BLOOD LUTEINISING HORMONE DECREASED
     Dosage: UNK
     Dates: start: 19930601
  20. PROVERA [Concomitant]
     Indication: BLOOD FOLLICLE STIMULATING HORMONE DECREASED
  21. PROVERA [Concomitant]
     Indication: HYPOGONADISM FEMALE

REACTIONS (1)
  - Dizziness [Unknown]
